FAERS Safety Report 19061113 (Version 6)
Quarter: 2021Q4

REPORT INFORMATION
  Report Type: Spontaneous
  Country: DE (occurrence: DE)
  Receive Date: 20210325
  Receipt Date: 20211014
  Transmission Date: 20220303
  Serious: Yes (Death, Other)
  Sender: FDA-Public Use
  Company Number: DE-GILEAD-2021-0522633

PATIENT
  Age: 4 Year
  Sex: Female
  Weight: 25 kg

DRUGS (3)
  1. REMDESIVIR [Suspect]
     Active Substance: REMDESIVIR
     Indication: COVID-19
     Dosage: 63 MG
     Route: 042
     Dates: start: 20210214, end: 20210221
  2. REMDESIVIR [Suspect]
     Active Substance: REMDESIVIR
     Dosage: 5 MG/KG ON FIRST DAY
     Route: 065
  3. REMDESIVIR [Suspect]
     Active Substance: REMDESIVIR
     Dosage: 2.5 MG/KG
     Route: 065

REACTIONS (7)
  - Pneumonia [Fatal]
  - Acute respiratory distress syndrome [Fatal]
  - Multisystem inflammatory syndrome in children [Fatal]
  - Pulmonary haemorrhage [Fatal]
  - Circulatory collapse [Fatal]
  - COVID-19 [Fatal]
  - Drug ineffective [Unknown]

NARRATIVE: CASE EVENT DATE: 20210301
